FAERS Safety Report 16819581 (Version 2)
Quarter: 2020Q2

REPORT INFORMATION
  Report Type: Report from Study
  Country: US (occurrence: US)
  Receive Date: 20190917
  Receipt Date: 20200422
  Transmission Date: 20200713
  Serious: Yes (Hospitalization, Other)
  Sender: FDA-Public Use
  Company Number: US-ACTELION-A-NJ2018-172155

PATIENT
  Age: 45 Year
  Sex: Female

DRUGS (17)
  1. ENOXAPARIN [Concomitant]
     Active Substance: ENOXAPARIN
     Dosage: 60 MG, Q12HRS
     Route: 058
  2. FAMOTIDINE. [Concomitant]
     Active Substance: FAMOTIDINE
     Dosage: 20 MG
     Route: 048
  3. MELATONIN [Concomitant]
     Active Substance: MELATONIN
     Dosage: 6 MG, QPM
     Route: 048
  4. ADEMPAS [Concomitant]
     Active Substance: RIOCIGUAT
     Dosage: 2.5 MG Q8HRS
     Route: 048
  5. REMODULIN [Suspect]
     Active Substance: TREPROSTINIL
     Indication: PRODUCT USED FOR UNKNOWN INDICATION
     Route: 065
  6. VITAMIN B12 [Concomitant]
     Active Substance: CYANOCOBALAMIN
     Dosage: 1000 MCG, QD
     Route: 048
  7. FOLIC ACID. [Concomitant]
     Active Substance: FOLIC ACID
     Dosage: 10 MG, QD
     Route: 048
  8. TRAMADOL. [Concomitant]
     Active Substance: TRAMADOL
     Dosage: 25 MG, Q4HRS
     Route: 048
  9. ORENITRAM [Suspect]
     Active Substance: TREPROSTINIL
     Indication: PRODUCT USED FOR UNKNOWN INDICATION
     Route: 065
  10. FUROSEMIDE. [Concomitant]
     Active Substance: FUROSEMIDE
     Dosage: 20 MG, BID
     Route: 048
  11. ZOLPIDEM [Concomitant]
     Active Substance: ZOLPIDEM TARTRATE
     Dosage: 5 MG, QPM
     Route: 048
  12. OPSUMIT [Suspect]
     Active Substance: MACITENTAN
     Indication: PULMONARY ARTERIAL HYPERTENSION
     Dosage: 10 MG, QD
     Route: 048
     Dates: start: 20180424
  13. LEVOTHYROXINE. [Concomitant]
     Active Substance: LEVOTHYROXINE
     Dosage: 137 MG, QAM
  14. ONDANSETRON [Concomitant]
     Active Substance: ONDANSETRON
     Dosage: 4 MG, PRN Q8HRS
     Route: 042
  15. TREPROSTINIL. [Concomitant]
     Active Substance: TREPROSTINIL
     Dosage: 2.5 MG Q8HRS
     Route: 048
  16. ACETAMINOPHEN. [Concomitant]
     Active Substance: ACETAMINOPHEN
     Indication: PAIN
     Dosage: 650 MG, Q6HRS
     Route: 048
  17. METOCLOPRAMIDE. [Concomitant]
     Active Substance: METOCLOPRAMIDE
     Dosage: 10 MG, PRN Q6HRS
     Route: 042

REACTIONS (28)
  - Nausea [Recovered/Resolved]
  - Headache [Recovered/Resolved]
  - Haemorrhoids [Unknown]
  - Pallor [Recovered/Resolved]
  - Infusion site erythema [Not Recovered/Not Resolved]
  - Pyrexia [Not Recovered/Not Resolved]
  - Catheter site related reaction [Not Recovered/Not Resolved]
  - Rectal haemorrhage [Unknown]
  - Infusion site pain [Not Recovered/Not Resolved]
  - Infusion site warmth [Not Recovered/Not Resolved]
  - Hyperbilirubinaemia [Not Recovered/Not Resolved]
  - Flushing [Unknown]
  - Cholelithiasis [Unknown]
  - Chills [Not Recovered/Not Resolved]
  - Feeling abnormal [Not Recovered/Not Resolved]
  - Hypoaesthesia [Not Recovered/Not Resolved]
  - Vomiting [Recovered/Resolved]
  - Diarrhoea [Recovered/Resolved]
  - Gilbert^s syndrome [Unknown]
  - Cardiac pacemaker insertion [Unknown]
  - Systemic lupus erythematosus [Unknown]
  - Complication associated with device [Unknown]
  - Dizziness [Recovered/Resolved]
  - Fatigue [Recovered/Resolved]
  - Cellulitis [Recovered/Resolved]
  - Bradycardia [Recovered/Resolved]
  - Abdominal pain upper [Unknown]
  - Syncope [Recovered/Resolved]

NARRATIVE: CASE EVENT DATE: 20180501
